FAERS Safety Report 11759278 (Version 1)
Quarter: 2015Q4

REPORT INFORMATION
  Report Type: Spontaneous
  Country: US (occurrence: US)
  Receive Date: 20151120
  Receipt Date: 20151120
  Transmission Date: 20160304
  Serious: No
  Sender: FDA-Public Use
  Company Number: US-ELI_LILLY_AND_COMPANY-US201210001725

PATIENT
  Sex: Female

DRUGS (2)
  1. FORTEO [Suspect]
     Active Substance: TERIPARATIDE
     Dosage: 20 UG, QD
     Dates: start: 201204
  2. FORTEO [Suspect]
     Active Substance: TERIPARATIDE
     Dosage: 20 UG, QD
     Dates: end: 20121002

REACTIONS (4)
  - Sleep disorder due to a general medical condition [Unknown]
  - Pain in extremity [Unknown]
  - Intentional product misuse [Unknown]
  - Arthralgia [Unknown]

NARRATIVE: CASE EVENT DATE: 201207
